FAERS Safety Report 25379164 (Version 1)
Quarter: 2025Q2

REPORT INFORMATION
  Report Type: Spontaneous
  Country: US (occurrence: US)
  Receive Date: 20250530
  Receipt Date: 20250530
  Transmission Date: 20250716
  Serious: Yes (Other)
  Sender: MERCK SHARP & DOHME LLC
  Company Number: US-009507513-2287887

PATIENT
  Age: 56 Year
  Sex: Female
  Weight: 50.88 kg

DRUGS (2)
  1. BELZUTIFAN [Suspect]
     Active Substance: BELZUTIFAN
     Indication: Renal cancer
     Route: 048
     Dates: start: 20250320
  2. CABOMETYX [Suspect]
     Active Substance: CABOZANTINIB S-MALATE
     Indication: Renal cancer
     Route: 048

REACTIONS (3)
  - Radiotherapy [Unknown]
  - Dental operation [Unknown]
  - Illness [Unknown]

NARRATIVE: CASE EVENT DATE: 20250101
